FAERS Safety Report 9124548 (Version 1)
Quarter: 2013Q1

REPORT INFORMATION
  Report Type: Spontaneous
  Country: US (occurrence: US)
  Receive Date: 20130227
  Receipt Date: 20130227
  Transmission Date: 20140127
  Serious: No
  Sender: FDA-Public Use
  Company Number: US-009507513-1302USA010671

PATIENT
  Age: 32 Year
  Sex: Male

DRUGS (1)
  1. PROPECIA [Suspect]
     Indication: ALOPECIA
     Dosage: 1/4 TABLET, QD
     Route: 048
     Dates: start: 201208, end: 201211

REACTIONS (4)
  - Pruritus [Unknown]
  - Lip swelling [Unknown]
  - Vertigo [Recovered/Resolved]
  - Urticaria [Unknown]
